FAERS Safety Report 5114260-5 (Version None)
Quarter: 2006Q3

REPORT INFORMATION
  Report Type: 
  Country: None (occurrence: None)
  Receive Date: 20060802
  Receipt Date: 20060622
  Transmission Date: 20061208
  Serious: No
  Sender: FDA-Public Use
  Company Number: 200615481US

PATIENT

DRUGS (2)
  1. KETEK [Suspect]
     Dosage: PO
     Route: 048
  2. DIABETIC MEDICATIONS (NOS) [Concomitant]

REACTIONS (1)
  - BLOOD GLUCOSE INCREASED [None]
